FAERS Safety Report 19483461 (Version 1)
Quarter: 2021Q3

REPORT INFORMATION
  Report Type: Report from Study
  Country: US (occurrence: US)
  Receive Date: 20210701
  Receipt Date: 20210701
  Transmission Date: 20211014
  Serious: No
  Sender: FDA-Public Use
  Company Number: NVSC2021US137818

PATIENT
  Sex: Female

DRUGS (1)
  1. ENTRESTO [Suspect]
     Active Substance: SACUBITRIL\VALSARTAN
     Indication: UNEVALUABLE EVENT
     Dosage: 50 MG, BID(24.26 MG)
     Route: 048
     Dates: start: 2019

REACTIONS (2)
  - Product use in unapproved indication [Unknown]
  - Pain in extremity [Unknown]
